FAERS Safety Report 19756625 (Version 1)
Quarter: 2021Q3

REPORT INFORMATION
  Report Type: Spontaneous
  Country: KR (occurrence: KR)
  Receive Date: 20210827
  Receipt Date: 20210827
  Transmission Date: 20211014
  Serious: Yes (Other)
  Sender: FDA-Public Use
  Company Number: NVSC2021KR193117

PATIENT
  Age: 68 Year
  Sex: Female

DRUGS (2)
  1. BEOVU [Suspect]
     Active Substance: BROLUCIZUMAB-DBLL
     Dosage: UNK
     Route: 065
     Dates: start: 20210703
  2. BEOVU [Suspect]
     Active Substance: BROLUCIZUMAB-DBLL
     Indication: POLYPOIDAL CHOROIDAL VASCULOPATHY
     Dosage: UNK
     Route: 065
     Dates: start: 20210424

REACTIONS (3)
  - Concomitant disease aggravated [Unknown]
  - Polypoidal choroidal vasculopathy [Not Recovered/Not Resolved]
  - Subretinal fluid [Unknown]

NARRATIVE: CASE EVENT DATE: 20210703
